FAERS Safety Report 9826206 (Version 1)
Quarter: 2014Q1

REPORT INFORMATION
  Report Type: Spontaneous
  Country: US (occurrence: None)
  Receive Date: 20140116
  Receipt Date: 20140116
  Transmission Date: 20141002
  Serious: Yes (Other)
  Sender: FDA-Public Use
  Company Number: None

PATIENT
  Age: 38 Year
  Sex: Male
  Weight: 77.11 kg

DRUGS (1)
  1. WALGREENS COLD + FLU RELIEF [Suspect]
     Indication: COUGH
     Route: 048
     Dates: start: 20140113, end: 20140114

REACTIONS (5)
  - Headache [None]
  - Fatigue [None]
  - Somnolence [None]
  - Feeling abnormal [None]
  - Bradyphrenia [None]
